FAERS Safety Report 22019905 (Version 6)
Quarter: 2023Q2

REPORT INFORMATION
  Report Type: Spontaneous
  Country: US (occurrence: US)
  Receive Date: 20230222
  Receipt Date: 20230505
  Transmission Date: 20230722
  Serious: Yes (Hospitalization, Other)
  Sender: FDA-Public Use
  Company Number: US-BRISTOL-MYERS SQUIBB COMPANY-2023-024695

PATIENT
  Age: 80 Year
  Sex: Female
  Weight: 52.16 kg

DRUGS (2)
  1. REVLIMID [Suspect]
     Active Substance: LENALIDOMIDE
     Indication: Plasma cell myeloma
     Dosage: 25 MG, DAILY 14 DAYS/14 DAYS ON 7 DAYS OFF?2WEEKS ON AND 1WEEK OFF
     Route: 048
  2. DEXAMETHASONE [Suspect]
     Active Substance: DEXAMETHASONE
     Indication: Product used for unknown indication

REACTIONS (13)
  - Kidney infection [Unknown]
  - Platelet count decreased [Unknown]
  - Off label use [Unknown]
  - Herpes zoster [Unknown]
  - Diarrhoea [Unknown]
  - Product dose omission issue [Unknown]
  - Nausea [Unknown]
  - Urinary tract infection [Unknown]
  - Dry skin [Unknown]
  - Pruritus [Unknown]
  - Rash [Unknown]
  - Tremor [Unknown]
  - Neuropathy peripheral [Unknown]

NARRATIVE: CASE EVENT DATE: 20230218
